FAERS Safety Report 9727628 (Version 2)
Quarter: 2014Q1

REPORT INFORMATION
  Report Type: Spontaneous
  Country: US (occurrence: US)
  Receive Date: 20131203
  Receipt Date: 20140203
  Transmission Date: 20141002
  Serious: No
  Sender: FDA-Public Use
  Company Number: US-009507513-1311USA008467

PATIENT
  Age: 47 Year
  Sex: Male
  Weight: 111.11 kg

DRUGS (7)
  1. VICTRELIS [Suspect]
     Dosage: TAKES 4 CAPSULES(800MG) BY MOUTH 3 TIMES A DAY (EVERY 7-9 HOURS) STARTING ON WEEK 5
     Route: 048
  2. PEGASYS [Suspect]
     Dosage: PROCLICK
  3. RIBAPAK [Suspect]
     Dosage: 1200/DAY
  4. PROTONIX [Concomitant]
  5. NORVASC [Concomitant]
  6. LISINOPRIL [Concomitant]
  7. METHIMAZOLE [Concomitant]

REACTIONS (3)
  - Hunger [Unknown]
  - Headache [Unknown]
  - Fatigue [Unknown]
